FAERS Safety Report 9160464 (Version 3)
Quarter: 2013Q2

REPORT INFORMATION
  Report Type: Spontaneous
  Country: US (occurrence: None)
  Receive Date: 20130219
  Receipt Date: 20130412
  Transmission Date: 20140414
  Serious: Yes (Other)
  Sender: FDA-Public Use
  Company Number: ACO_34287_2013

PATIENT
  Age: 60 Year
  Sex: Male

DRUGS (1)
  1. AMPYRA [Suspect]
     Indication: GAIT DISTURBANCE
     Route: 048
     Dates: start: 2011, end: 20121218

REACTIONS (7)
  - Intervertebral disc compression [None]
  - Foot fracture [None]
  - Fall [None]
  - Mobility decreased [None]
  - Face injury [None]
  - Scar [None]
  - Balance disorder [None]
